FAERS Safety Report 4815925-2 (Version None)
Quarter: 2005Q4

REPORT INFORMATION
  Report Type: 
  Country: None (occurrence: None)
  Receive Date: 20051031
  Receipt Date: 20050915
  Transmission Date: 20060501
  Serious: Yes (Disabling)
  Sender: FDA-Public Use
  Company Number: US-BRISTOL-MYERS SQUIBB COMPANY-13111174

PATIENT
  Age: 45 Year
  Sex: Female

DRUGS (4)
  1. ABILIFY [Suspect]
     Indication: BIPOLAR DISORDER
     Route: 048
     Dates: start: 20050801, end: 20051010
  2. WELLBUTRIN XL [Concomitant]
  3. LAMICTAL [Concomitant]
  4. SEROQUEL [Concomitant]

REACTIONS (1)
  - BLINDNESS [None]
